FAERS Safety Report 12341174 (Version 2)
Quarter: 2016Q2

REPORT INFORMATION
  Report Type: Spontaneous
  Country: IT (occurrence: IT)
  Receive Date: 20160506
  Receipt Date: 20160506
  Transmission Date: 20160815
  Serious: Yes (Hospitalization)
  Sender: FDA-Public Use
  Company Number: IT-SA-2016SA086993

PATIENT
  Age: 61 Year
  Sex: Male

DRUGS (6)
  1. PIRALDINA [Suspect]
     Active Substance: PYRAZINAMIDE
     Indication: BONE TUBERCULOSIS
     Route: 048
     Dates: start: 20060922, end: 20061201
  2. NICOZID [Suspect]
     Active Substance: ISONIAZID
     Indication: BONE TUBERCULOSIS
     Route: 048
     Dates: start: 20060922, end: 20061201
  3. ETAPIAM [Suspect]
     Active Substance: ETHAMBUTOL HYDROCHLORIDE
     Indication: BONE TUBERCULOSIS
     Route: 048
     Dates: start: 20060922, end: 20061201
  4. VIREAD [Concomitant]
     Active Substance: TENOFOVIR DISOPROXIL FUMARATE
     Indication: ANTIRETROVIRAL THERAPY
     Dosage: 245 MG FILM-COATED TABLETS IN VIAL ORAL USE
     Route: 048
     Dates: start: 20060111, end: 20061108
  5. TRIZIVIR [Concomitant]
     Active Substance: ABACAVIR SULFATE\LAMIVUDINE\ZIDOVUDINE
     Indication: ANTIRETROVIRAL THERAPY
     Dosage: 60 FILM-COATED TABLETS ORAL USE DOSE:2 UNIT(S)
     Route: 048
     Dates: start: 20060111, end: 20070731
  6. RIFADIN [Suspect]
     Active Substance: RIFAMPIN
     Indication: BONE TUBERCULOSIS
     Route: 048
     Dates: start: 20060922, end: 20061201

REACTIONS (3)
  - Abnormal dreams [Recovering/Resolving]
  - Nausea [Recovering/Resolving]
  - Insomnia [Recovering/Resolving]

NARRATIVE: CASE EVENT DATE: 20061015
